FAERS Safety Report 5928836-6 (Version None)
Quarter: 2008Q4

REPORT INFORMATION
  Report Type: 
  Country: None (occurrence: None)
  Receive Date: 20081021
  Receipt Date: 20081006
  Transmission Date: 20090506
  Serious: Yes (Hospitalization)
  Sender: FDA-Public Use
  Company Number: IDA-00139

PATIENT
  Age: 65 Year
  Sex: Male

DRUGS (6)
  1. PROPRANOLOL [Suspect]
     Indication: MALAISE
     Dosage: ORAL FORMULATION: TABLET
     Route: 048
  2. VERCYTE (PIPOBROMAN) STRENGTH:  1DF [Suspect]
     Indication: POLYCYTHAEMIA VERA
     Dosage: ONE TO SEVEN DF DAILY; ORAL FORMULATION
     Route: 048
     Dates: start: 20000101
  3. VERAPAMIL [Suspect]
     Indication: TACHYCARDIA
     Dosage: 360 MG DAILY, ORAL FORMULATION
     Route: 048
  4. ACETAMINOPHEN [Concomitant]
  5. KETOPROFEN [Concomitant]
  6. NO MATCH (NO MATCH) [Concomitant]

REACTIONS (8)
  - BLOOD LACTATE DEHYDROGENASE INCREASED [None]
  - CD4 LYMPHOCYTES DECREASED [None]
  - HYPOGAMMAGLOBULINAEMIA [None]
  - LYMPHOCYTE MORPHOLOGY ABNORMAL [None]
  - LYMPHOPENIA [None]
  - OEDEMA [None]
  - SPLENOMEGALY [None]
  - URTICARIA [None]
